FAERS Safety Report 20163158 (Version 1)
Quarter: 2021Q4

REPORT INFORMATION
  Report Type: Spontaneous
  Country: CN (occurrence: CN)
  Receive Date: 20211209
  Receipt Date: 20211209
  Transmission Date: 20220303
  Serious: Yes (Other)
  Sender: FDA-Public Use
  Company Number: CN-LUPIN PHARMACEUTICALS INC.-2021-24012

PATIENT
  Age: 67 Year
  Sex: Male

DRUGS (18)
  1. LORAZEPAM [Suspect]
     Active Substance: LORAZEPAM
     Indication: Insomnia
     Dosage: 0.25 MILLIGRAM
     Route: 048
  2. LORAZEPAM [Suspect]
     Active Substance: LORAZEPAM
     Dosage: UNK (DOSE INCREASED)
     Route: 048
  3. LORAZEPAM [Suspect]
     Active Substance: LORAZEPAM
     Dosage: UNK (AGAIN RESTARTED AND FINALLY DISCONTINUED)
     Route: 048
  4. SERTRALINE [Suspect]
     Active Substance: SERTRALINE HYDROCHLORIDE
     Indication: Insomnia
     Dosage: 50 MILLIGRAM
     Route: 048
  5. SERTRALINE [Suspect]
     Active Substance: SERTRALINE HYDROCHLORIDE
     Dosage: UNK (DOSE INCREASED)
     Route: 048
  6. SERTRALINE [Suspect]
     Active Substance: SERTRALINE HYDROCHLORIDE
     Dosage: UNK (AGAIN RESTARTED AND FINALLY DISCONTINUED)
     Route: 048
  7. ZOPICLONE [Suspect]
     Active Substance: ZOPICLONE
     Indication: Insomnia
     Dosage: 5 MILLIGRAM
     Route: 048
  8. ZOPICLONE [Suspect]
     Active Substance: ZOPICLONE
     Dosage: UNK (DOSE INCREASED)
     Route: 048
  9. ZOPICLONE [Suspect]
     Active Substance: ZOPICLONE
     Dosage: UNK (AGAIN RESTARTED AND FINALLY DISCONTINUED)
     Route: 048
  10. DEXMEDETOMIDINE [Concomitant]
     Active Substance: DEXMEDETOMIDINE
     Indication: Insomnia
     Dosage: 60 MICROGRAM (LOADING DOSE)
     Route: 065
  11. DEXMEDETOMIDINE [Concomitant]
     Active Substance: DEXMEDETOMIDINE
     Dosage: 0.1 MILLILITER (BACKGROUND INFUSION)
     Route: 065
  12. DEXMEDETOMIDINE [Concomitant]
     Active Substance: DEXMEDETOMIDINE
     Dosage: 40 MICROGRAM (BOLUS DOSE (0.1 ML/S))
     Route: 065
  13. DEXMEDETOMIDINE [Concomitant]
     Active Substance: DEXMEDETOMIDINE
     Dosage: 56 MICROGRAM INFUSION
     Route: 065
  14. DEXMEDETOMIDINE [Concomitant]
     Active Substance: DEXMEDETOMIDINE
     Dosage: 30 MILLILITER (CONTINUOUS INFUSION (4 UG/ML))
     Route: 065
  15. DEXMEDETOMIDINE [Concomitant]
     Active Substance: DEXMEDETOMIDINE
     Dosage: 40 MICROGRAM INFUSION
     Route: 065
  16. SCOPOLAMINE [Concomitant]
     Active Substance: SCOPOLAMINE
     Indication: Sedation
     Dosage: 0.3 MILLIGRAM
     Route: 065
  17. SODIUM OXYBATE [Concomitant]
     Active Substance: SODIUM OXYBATE
     Indication: Sedation
     Dosage: 60 MILLIGRAM
     Route: 065
  18. PROPOFOL [Concomitant]
     Active Substance: PROPOFOL
     Indication: Sedation
     Dosage: 10 MILLIGRAM
     Route: 065

REACTIONS (10)
  - Hallucination, auditory [Recovering/Resolving]
  - Illusion [Recovering/Resolving]
  - Withdrawal syndrome [Recovering/Resolving]
  - Drug dependence [Unknown]
  - Headache [Unknown]
  - Dizziness [Unknown]
  - Hangover [Unknown]
  - Palpitations [Recovering/Resolving]
  - Hyperhidrosis [Recovering/Resolving]
  - Nausea [Recovering/Resolving]
